FAERS Safety Report 9825055 (Version 1)
Quarter: 2013Q4

REPORT INFORMATION
  Report Type: Spontaneous
  Country: DE (occurrence: None)
  Receive Date: 20131031
  Receipt Date: 20131031
  Transmission Date: 20140711
  Serious: No
  Sender: FDA-Public Use
  Company Number: 2013S1000001

PATIENT
  Age: 67 Year
  Sex: Female
  Weight: 56 kg

DRUGS (5)
  1. KRYSTEXXA [Suspect]
     Indication: GOUT
     Dosage: 8 MG;Q14DAYS; IV
     Route: 042
     Dates: start: 20120924, end: 20120924
  2. COLCHICINE [Concomitant]
  3. PREDNISOLONE [Concomitant]
  4. RANITIC [Concomitant]
  5. CLEMASTIN [Concomitant]

REACTIONS (1)
  - Therapeutic response decreased [None]
